FAERS Safety Report 25951357 (Version 2)
Quarter: 2025Q4

REPORT INFORMATION
  Report Type: Report from Study
  Country: EU (occurrence: EU)
  Receive Date: 20251023
  Receipt Date: 20251117
  Transmission Date: 20260117
  Serious: Yes (Hospitalization)
  Sender: TAKEDA
  Company Number: EU-TAKEDA-2022TUS067955

PATIENT
  Age: 7 Year
  Sex: Female

DRUGS (6)
  1. VELAGLUCERASE ALFA [Suspect]
     Active Substance: VELAGLUCERASE ALFA
     Indication: Gaucher^s disease
     Dosage: 1200 MILLIGRAM, Q2WEEKS
  2. VELAGLUCERASE ALFA [Suspect]
     Active Substance: VELAGLUCERASE ALFA
     Dosage: 1200 INTERNATIONAL UNIT, Q2WEEKS
  3. VELAGLUCERASE ALFA [Suspect]
     Active Substance: VELAGLUCERASE ALFA
     Dosage: 1200 INTERNATIONAL UNIT, Q2WEEKS
  4. VELAGLUCERASE ALFA [Suspect]
     Active Substance: VELAGLUCERASE ALFA
     Dosage: 1200 INTERNATIONAL UNIT, Q2WEEKS
  5. VELAGLUCERASE ALFA [Suspect]
     Active Substance: VELAGLUCERASE ALFA
     Dosage: 1600 INTERNATIONAL UNIT, Q2WEEKS
  6. VELAGLUCERASE ALFA [Suspect]
     Active Substance: VELAGLUCERASE ALFA
     Dosage: 1600 INTERNATIONAL UNIT, Q2WEEKS

REACTIONS (9)
  - Tonsillitis [Recovered/Resolved]
  - Vomiting [Not Recovered/Not Resolved]
  - Oropharyngeal pain [Unknown]
  - Nasopharyngitis [Unknown]
  - Febrile infection [Not Recovered/Not Resolved]
  - Cough [Not Recovered/Not Resolved]
  - Asthenia [Unknown]
  - Fatigue [Unknown]
  - Pyrexia [Not Recovered/Not Resolved]

NARRATIVE: CASE EVENT DATE: 20220920
